FAERS Safety Report 20789844 (Version 1)
Quarter: 2022Q2

REPORT INFORMATION
  Report Type: Spontaneous
  Country: US (occurrence: None)
  Receive Date: 20220505
  Receipt Date: 20220505
  Transmission Date: 20220721
  Serious: Yes (Hospitalization)
  Sender: FDA-Public Use
  Company Number: None

PATIENT
  Age: 37 Year
  Sex: Female
  Weight: 75.15 kg

DRUGS (1)
  1. METRONIDAZOLE [Suspect]
     Active Substance: METRONIDAZOLE
     Indication: Bacterial vaginosis
     Dosage: OTHER QUANTITY : 1 SYRINGE;?FREQUENCY : AT BEDTIME;?
     Route: 067
     Dates: start: 20220502, end: 20220503

REACTIONS (9)
  - Decreased appetite [None]
  - Abdominal pain upper [None]
  - Fatigue [None]
  - Dry mouth [None]
  - Dyspnoea [None]
  - Panic attack [None]
  - Hypoaesthesia [None]
  - Hypoaesthesia [None]
  - Sensory loss [None]

NARRATIVE: CASE EVENT DATE: 20220503
